FAERS Safety Report 10098516 (Version 2)
Quarter: 2014Q2

REPORT INFORMATION
  Report Type: Spontaneous
  Country: BG (occurrence: BG)
  Receive Date: 20140423
  Receipt Date: 20140522
  Transmission Date: 20141212
  Serious: Yes (Hospitalization, Other)
  Sender: FDA-Public Use
  Company Number: BG-AMGEN-BGRSP2014028585

PATIENT
  Sex: Female
  Weight: 48 kg

DRUGS (7)
  1. NEULASTA [Suspect]
     Indication: PRODUCT USED FOR UNKNOWN INDICATION
     Dosage: DOSE 1 AMPOULE, FREQUENCY 1
     Route: 058
     Dates: start: 20140405
  2. CARBOPLATIN [Concomitant]
     Indication: LUNG NEOPLASM MALIGNANT
     Dosage: UNK
  3. ETOPOSIDE [Concomitant]
     Indication: LUNG NEOPLASM MALIGNANT
     Dosage: UNK
  4. QUAMATEL [Concomitant]
     Indication: ABDOMINAL PAIN UPPER
     Dosage: UNK
  5. QUAMATEL [Concomitant]
     Indication: NAUSEA
  6. CERUCAL [Concomitant]
     Indication: ABDOMINAL PAIN UPPER
     Dosage: UNK
  7. CERUCAL [Concomitant]
     Indication: NAUSEA

REACTIONS (6)
  - Febrile neutropenia [Recovered/Resolved]
  - Extravasation [Unknown]
  - Asthenia [Not Recovered/Not Resolved]
  - Haemorrhage subcutaneous [Not Recovered/Not Resolved]
  - Tinnitus [Not Recovered/Not Resolved]
  - Incorrect product storage [Unknown]
